FAERS Safety Report 4453300-3 (Version None)
Quarter: 2004Q3

REPORT INFORMATION
  Report Type: 
  Country: None (occurrence: None)
  Receive Date: 20040902
  Receipt Date: 20040516
  Transmission Date: 20050211
  Serious: No
  Sender: FDA-Public Use
  Company Number: 200417898BWH

PATIENT
  Age: 74 Year
  Sex: Male
  Weight: 85.7298 kg

DRUGS (6)
  1. LEVITRA [Suspect]
     Indication: ERECTILE DYSFUNCTION
     Dosage: 10 MG, ONCE, ORAL
     Route: 048
     Dates: start: 20040516
  2. ZANTAC [Concomitant]
  3. VITAMIN C [Concomitant]
  4. B COMPLEX WITH AMINO ACIDS [Concomitant]
  5. VITAMINS W/MINERALS/GINSENG/ [Concomitant]
  6. THYROID CARE [Concomitant]

REACTIONS (3)
  - ERECTILE DYSFUNCTION [None]
  - NASAL CONGESTION [None]
  - NIPPLE SWELLING [None]
